FAERS Safety Report 5858426-5 (Version None)
Quarter: 2008Q3

REPORT INFORMATION
  Report Type: 
  Country: None (occurrence: None)
  Receive Date: 20080822
  Receipt Date: 20080814
  Transmission Date: 20090109
  Serious: Yes (Other)
  Sender: FDA-Public Use
  Company Number: 2008SP016193

PATIENT
  Age: 43 Year
  Sex: Male

DRUGS (2)
  1. RIBAVIRIN [Suspect]
     Indication: HEPATITIS C
     Dosage: PO
     Route: 048
  2. PEGYLATED INTERFERON ALFPA (NO PREF. NAME) [Suspect]
     Indication: HEPATITIS C

REACTIONS (1)
  - TRANSIENT ISCHAEMIC ATTACK [None]
